FAERS Safety Report 6435204-X (Version None)
Quarter: 2009Q4

REPORT INFORMATION
  Report Type: 
  Country: None (occurrence: None)
  Receive Date: 20091110
  Receipt Date: 20091103
  Transmission Date: 20100525
  Serious: Yes (Hospitalization)
  Sender: FDA-Public Use
  Company Number: US-RB-023246-09

PATIENT
  Age: 56 Year
  Sex: Male

DRUGS (2)
  1. SUBOXONE [Suspect]
     Route: 060
     Dates: start: 20091001, end: 20091028
  2. SUBOXONE [Suspect]
     Route: 060
     Dates: start: 20091029

REACTIONS (2)
  - DRUG DEPENDENCE [None]
  - NEPHROLITHIASIS [None]
